FAERS Safety Report 15814325 (Version 1)
Quarter: 2019Q1

REPORT INFORMATION
  Report Type: Spontaneous
  Country: US (occurrence: US)
  Receive Date: 20190111
  Receipt Date: 20190111
  Transmission Date: 20190417
  Serious: No
  Sender: FDA-Public Use
  Company Number: US-BAUSCH-BL-2015-011159

PATIENT
  Age: 54 Year
  Sex: Male

DRUGS (1)
  1. ZYLET [Suspect]
     Active Substance: LOTEPREDNOL ETABONATE\TOBRAMYCIN
     Indication: CONJUNCTIVITIS
     Dosage: ONE DROP IN EACH EYE EVERY FOUR TO SIX HOURS.
     Route: 047
     Dates: start: 20150402

REACTIONS (3)
  - Nervousness [Not Recovered/Not Resolved]
  - Anxiety [Not Recovered/Not Resolved]
  - Paraesthesia [Not Recovered/Not Resolved]

NARRATIVE: CASE EVENT DATE: 20150402
